FAERS Safety Report 6247235-3 (Version None)
Quarter: 2009Q2

REPORT INFORMATION
  Report Type: 
  Country: None (occurrence: None)
  Receive Date: 20090626
  Receipt Date: 20090615
  Transmission Date: 20091009
  Serious: Yes (Life-Threatening, Hospitalization)
  Sender: FDA-Public Use
  Company Number: US-PFIZER INC-2008047963

PATIENT
  Sex: Female
  Weight: 78.005 kg

DRUGS (3)
  1. SUTENT [Suspect]
     Indication: RENAL CELL CARCINOMA
     Dosage: 50 MG, UNK
     Route: 048
     Dates: start: 20080201, end: 20080801
  2. GEMFIBROZIL [Suspect]
  3. NIACIN [Suspect]

REACTIONS (5)
  - FATIGUE [None]
  - JAUNDICE [None]
  - RASH [None]
  - SINUS CONGESTION [None]
  - SINUS HEADACHE [None]
